FAERS Safety Report 4518833-X (Version None)
Quarter: 2004Q4

REPORT INFORMATION
  Report Type: 
  Country: None (occurrence: None)
  Receive Date: 20041206
  Receipt Date: 20041123
  Transmission Date: 20050328
  Serious: Yes (Death)
  Sender: FDA-Public Use
  Company Number: IT-JNJFOC-20041106478

PATIENT
  Age: 56 Year
  Sex: Female

DRUGS (1)
  1. INFLIXIMAB [Suspect]
     Indication: RHEUMATOID ARTHRITIS
     Route: 042

REACTIONS (7)
  - CARDIAC FAILURE ACUTE [None]
  - CORONARY ARTERY ATHEROSCLEROSIS [None]
  - DRUG INEFFECTIVE [None]
  - MYOCARDIAL INFARCTION [None]
  - MYOCARDIAL ISCHAEMIA [None]
  - PULMONARY NECROSIS [None]
  - TUBERCULOSIS [None]
